FAERS Safety Report 17468655 (Version 1)
Quarter: 2020Q1

REPORT INFORMATION
  Report Type: Spontaneous
  Country: GB (occurrence: GB)
  Receive Date: 20200227
  Receipt Date: 20200227
  Transmission Date: 20200409
  Serious: Yes (Life-Threatening, Other)
  Sender: FDA-Public Use
  Company Number: GB-SA-2020SA051239

PATIENT
  Age: 76 Year
  Sex: Female

DRUGS (10)
  1. ATORVASTATIN [Concomitant]
     Active Substance: ATORVASTATIN
     Dosage: IN THE EVENING
     Route: 065
     Dates: start: 20190521
  2. TICAGRELOR. [Concomitant]
     Active Substance: TICAGRELOR
     Dosage: 2 DF, QD
     Route: 065
     Dates: start: 20200117
  3. ISOSORBIDE MONONITRATE. [Concomitant]
     Active Substance: ISOSORBIDE MONONITRATE
     Dosage: 2 DF, QD
     Route: 065
     Dates: start: 20190521
  4. BISOPROLOL [Concomitant]
     Active Substance: BISOPROLOL
     Dosage: 1 DF, QD
     Route: 065
     Dates: start: 20190530
  5. LANSOPRAZOLE. [Concomitant]
     Active Substance: LANSOPRAZOLE
     Dosage: 1 DF, QD
     Route: 065
     Dates: start: 20191128
  6. LEVOTHYROXINE. [Concomitant]
     Active Substance: LEVOTHYROXINE
     Dosage: 1 DF, QOD (EVERY OTHER MORNING)
     Route: 065
     Dates: start: 20180709
  7. ACETYLSALICYLIC ACID [Concomitant]
     Active Substance: ASPIRIN
     Dosage: 1 DF, QD
     Route: 065
     Dates: start: 20190521
  8. CITALOPRAM [Concomitant]
     Active Substance: CITALOPRAM HYDROBROMIDE
     Dosage: 1 DF, QD
     Route: 065
     Dates: start: 20180709
  9. CLOPIDOGREL BISULFATE. [Suspect]
     Active Substance: CLOPIDOGREL BISULFATE
     Dosage: 75 MG, QD (TAKE FOR 1 YEAR)
     Route: 065
     Dates: start: 20191128, end: 20200117
  10. NASEPTIN [Concomitant]
     Active Substance: CHLORHEXIDINE HYDROCHLORIDE\NEOMYCIN SULFATE
     Dosage: 4 DF, QD
     Route: 045
     Dates: start: 20200212

REACTIONS (1)
  - Neutropenic sepsis [Recovering/Resolving]
